FAERS Safety Report 20636606 (Version 2)
Quarter: 2022Q2

REPORT INFORMATION
  Report Type: Spontaneous
  Country: US (occurrence: US)
  Receive Date: 20220325
  Receipt Date: 20220509
  Transmission Date: 20220721
  Serious: No
  Sender: FDA-Public Use
  Company Number: US-VERTEX PHARMACEUTICALS-2022-004681

PATIENT
  Age: 5 Year
  Sex: Male

DRUGS (2)
  1. KALYDECO [Suspect]
     Active Substance: IVACAFTOR
     Indication: Cystic fibrosis
     Dosage: 75 MG (1 PACKET GRANULES), BID
     Route: 048
     Dates: start: 20210721, end: 20211001
  2. KALYDECO [Suspect]
     Active Substance: IVACAFTOR
     Dosage: 50 MG (1 PACKET GRANULES), BID
     Route: 048
     Dates: start: 20220321

REACTIONS (1)
  - Headache [Unknown]

NARRATIVE: CASE EVENT DATE: 20211001
